FAERS Safety Report 6412201-1 (Version None)
Quarter: 2009Q4

REPORT INFORMATION
  Report Type: 
  Country: None (occurrence: None)
  Receive Date: 20091023
  Receipt Date: 20091022
  Transmission Date: 20100525
  Serious: Yes (Hospitalization)
  Sender: FDA-Public Use
  Company Number: B0577201A

PATIENT
  Sex: Female
  Weight: 68 kg

DRUGS (2)
  1. LAPATINIB [Suspect]
     Indication: BREAST CANCER
     Dosage: 1500MG PER DAY
     Route: 048
     Dates: start: 20090130, end: 20090601
  2. PACLITAXEL [Suspect]
     Indication: BREAST CANCER
     Dates: start: 20090313

REACTIONS (19)
  - ACOUSTIC NEURITIS [None]
  - ASTHENIA [None]
  - BLOOD CREATININE INCREASED [None]
  - COLITIS [None]
  - DECREASED APPETITE [None]
  - DIARRHOEA [None]
  - DIZZINESS [None]
  - GASTRITIS [None]
  - GASTROOESOPHAGEAL REFLUX DISEASE [None]
  - GRANULOCYTOPENIA [None]
  - HEPATIC FUNCTION ABNORMAL [None]
  - HYPOTENSION [None]
  - LEFT VENTRICULAR FAILURE [None]
  - LEUKOPENIA [None]
  - NEUROPATHY PERIPHERAL [None]
  - POISONING [None]
  - PYREXIA [None]
  - RENAL FAILURE CHRONIC [None]
  - VERTIGO [None]
